FAERS Safety Report 10966688 (Version 1)
Quarter: 2015Q1

REPORT INFORMATION
  Report Type: Spontaneous
  Country: US (occurrence: US)
  Receive Date: 20150330
  Receipt Date: 20150330
  Transmission Date: 20150721
  Serious: Yes (Other)
  Sender: FDA-Public Use
  Company Number: US-ELI_LILLY_AND_COMPANY-US201503006949

PATIENT
  Sex: Male
  Weight: 68.03 kg

DRUGS (2)
  1. HUMALOG [Suspect]
     Active Substance: INSULIN LISPRO
     Indication: TYPE 1 DIABETES MELLITUS
     Dosage: 15 U, PRN
     Route: 065
  2. LANTUS [Concomitant]
     Active Substance: INSULIN GLARGINE
     Route: 065

REACTIONS (7)
  - Blood glucose increased [Unknown]
  - Blood glucose decreased [Unknown]
  - Drug ineffective [Recovered/Resolved]
  - Fall [Unknown]
  - Hypoglycaemia [Recovered/Resolved]
  - Hypoglycaemia [Unknown]
  - Drug ineffective [Unknown]
